FAERS Safety Report 18603755 (Version 1)
Quarter: 2020Q4

REPORT INFORMATION
  Report Type: Spontaneous
  Country: DE (occurrence: DE)
  Receive Date: 20201211
  Receipt Date: 20201211
  Transmission Date: 20210114
  Serious: Yes (Hospitalization)
  Sender: FDA-Public Use
  Company Number: DE-B.I. PHARMACEUTICALS,INC./RIDGEFIELD-2020-BI-066809

PATIENT
  Age: 80 Year
  Sex: Female
  Weight: 34 kg

DRUGS (2)
  1. OXYGEN. [Concomitant]
     Active Substance: OXYGEN
  2. SPIOLTO RESPIMAT [Suspect]
     Active Substance: OLODATEROL HYDROCHLORIDE\TIOTROPIUM BROMIDE MONOHYDRATE
     Indication: CHRONIC OBSTRUCTIVE PULMONARY DISEASE
     Dosage: 2 PUFFS IN THE MORNING

REACTIONS (4)
  - Dyspnoea [Unknown]
  - Upper respiratory tract congestion [Unknown]
  - Bone operation [Unknown]
  - Bedridden [Unknown]

NARRATIVE: CASE EVENT DATE: 2020
